FAERS Safety Report 10224250 (Version 1)
Quarter: 2014Q2

REPORT INFORMATION
  Report Type: Spontaneous
  Country: US (occurrence: None)
  Receive Date: 20140605
  Receipt Date: 20140605
  Transmission Date: 20141212
  Serious: Yes (Death)
  Sender: FDA-Public Use
  Company Number: UNT-2014-001076

PATIENT
  Sex: Female

DRUGS (1)
  1. TYVASO (TREPROSTINIL SODIUM) INHALATION GAS, 0.6MG/ML [Suspect]
     Indication: PULMONARY ARTERIAL HYPERTENSION
     Dosage: 54 UG (9 BREATHS), UNK, INHALED
     Route: 055
     Dates: start: 20130724, end: 20140518

REACTIONS (1)
  - Cardiac disorder [None]
